FAERS Safety Report 19965399 (Version 2)
Quarter: 2021Q4

REPORT INFORMATION
  Report Type: Report from Study
  Country: CA (occurrence: CA)
  Receive Date: 20211018
  Receipt Date: 20211108
  Transmission Date: 20220303
  Serious: Yes (Death, Hospitalization, Other)
  Sender: FDA-Public Use
  Company Number: CA-TAKEDA-CA202026953

PATIENT
  Age: 48 Year
  Sex: Male

DRUGS (16)
  1. TEDUGLUTIDE [Suspect]
     Active Substance: TEDUGLUTIDE
     Indication: Short-bowel syndrome
     Dosage: 2.90 MILLIGRAM, 1X/DAY:QD
     Route: 065
     Dates: start: 20160718
  2. TEDUGLUTIDE [Suspect]
     Active Substance: TEDUGLUTIDE
     Indication: Short-bowel syndrome
     Dosage: 2.90 MILLIGRAM, 1X/DAY:QD
     Route: 065
     Dates: start: 20160718
  3. TEDUGLUTIDE [Suspect]
     Active Substance: TEDUGLUTIDE
     Indication: Short-bowel syndrome
     Dosage: 2.90 MILLIGRAM, 1X/DAY:QD
     Route: 065
     Dates: start: 20160718
  4. TEDUGLUTIDE [Suspect]
     Active Substance: TEDUGLUTIDE
     Indication: Short-bowel syndrome
     Dosage: 2.90 MILLIGRAM, 1X/DAY:QD
     Route: 065
     Dates: start: 20160718
  5. TEDUGLUTIDE [Suspect]
     Active Substance: TEDUGLUTIDE
     Dosage: 2.8 MILLIGRAM, QD
     Route: 065
     Dates: start: 20160718
  6. TEDUGLUTIDE [Suspect]
     Active Substance: TEDUGLUTIDE
     Dosage: 2.8 MILLIGRAM, QD
     Route: 065
     Dates: start: 20160718
  7. TEDUGLUTIDE [Suspect]
     Active Substance: TEDUGLUTIDE
     Dosage: 2.8 MILLIGRAM, QD
     Route: 065
     Dates: start: 20160718
  8. TEDUGLUTIDE [Suspect]
     Active Substance: TEDUGLUTIDE
     Dosage: 2.8 MILLIGRAM, QD
     Route: 065
     Dates: start: 20160718
  9. TPN NO.2 [Concomitant]
     Dosage: 2190 MILLILITER, 5/WEEK
     Route: 042
  10. PREVACID [Concomitant]
     Active Substance: LANSOPRAZOLE
     Dosage: 30 MILLIGRAM, BID
     Route: 048
  11. URSODIOL [Concomitant]
     Active Substance: URSODIOL
     Dosage: 200 MILLIGRAM, BID
     Route: 048
  12. ATORVASTATIN [Concomitant]
     Active Substance: ATORVASTATIN
     Dosage: 40 MILLIGRAM, QD
     Route: 048
  13. METOPROLOL [Concomitant]
     Active Substance: METOPROLOL
     Dosage: 25 MILLIGRAM, BID
     Route: 048
  14. BRILINTA [Concomitant]
     Active Substance: TICAGRELOR
     Dosage: 90 MILLIGRAM, BID
     Route: 048
  15. TRAZODONE [Concomitant]
     Active Substance: TRAZODONE HYDROCHLORIDE
     Dosage: 50 MILLIGRAM, QD
     Route: 048
  16. POTASSIUM [Concomitant]
     Active Substance: POTASSIUM
     Dosage: 3000 MILLILITER, QD
     Route: 042

REACTIONS (5)
  - Pneumonia [Fatal]
  - Staphylococcal infection [Recovering/Resolving]
  - Renal failure [Recovering/Resolving]
  - Hypotension [Recovering/Resolving]
  - Hepatic enzyme increased [Not Recovered/Not Resolved]

NARRATIVE: CASE EVENT DATE: 20210921
